FAERS Safety Report 4834739-0 (Version None)
Quarter: 2005Q4

REPORT INFORMATION
  Report Type: 
  Country: None (occurrence: None)
  Receive Date: 20051122
  Receipt Date: 20050808
  Transmission Date: 20060501
  Serious: No
  Sender: FDA-Public Use
  Company Number: US-BRISTOL-MYERS SQUIBB COMPANY-13068150

PATIENT
  Sex: Female

DRUGS (4)
  1. PRAVACHOL [Suspect]
     Indication: HYPERCHOLESTEROLAEMIA
  2. METHIMAZOLE [Concomitant]
  3. DIOVAN [Concomitant]
  4. DITROPAN [Concomitant]

REACTIONS (1)
  - ALOPECIA [None]
